FAERS Safety Report 6819993-8 (Version None)
Quarter: 2010Q3

REPORT INFORMATION
  Report Type: 
  Country: None (occurrence: None)
  Receive Date: 20100707
  Receipt Date: 20100624
  Transmission Date: 20110219
  Serious: Yes (Death, Hospitalization, Other)
  Sender: FDA-Public Use
  Company Number: TR-GENZYME-CERZ-1001347

PATIENT

DRUGS (9)
  1. CEREZYME [Suspect]
     Indication: GAUCHER'S DISEASE
     Dosage: 50 U/KG, UNK
     Route: 042
     Dates: end: 20100419
  2. CEFIXIME [Concomitant]
     Indication: PRODUCT USED FOR UNKNOWN INDICATION
     Dosage: 100 MG/KG, QD
     Route: 042
     Dates: start: 20100120, end: 20100208
  3. AMIKACIN [Concomitant]
     Indication: PRODUCT USED FOR UNKNOWN INDICATION
     Dosage: 15 MG/KG, QD
     Route: 042
     Dates: start: 20100120, end: 20100204
  4. TEICOPLANIN [Concomitant]
     Indication: PRODUCT USED FOR UNKNOWN INDICATION
     Dosage: 10 MG/KG, UNK
     Route: 042
     Dates: start: 20100126, end: 20100222
  5. CEFOPERAZONE W [Concomitant]
     Indication: PRODUCT USED FOR UNKNOWN INDICATION
     Dosage: 150 MG/KG, QD
     Route: 042
     Dates: start: 20100209, end: 20100502
  6. MEROPENEM [Concomitant]
     Indication: PRODUCT USED FOR UNKNOWN INDICATION
     Dosage: 80 MG/KG, QD
     Route: 042
     Dates: start: 20100222, end: 20100505
  7. TEICOPLANIN [Concomitant]
     Dosage: 10 MG/KG, QD
     Route: 042
     Dates: start: 20100427, end: 20100505
  8. KLARITOMYCINE [Concomitant]
     Indication: PRODUCT USED FOR UNKNOWN INDICATION
     Dosage: 15 MG/KG, QD
     Route: 042
     Dates: start: 20100109, end: 20100508
  9. KLARITOMYCINE [Concomitant]
     Dosage: 15 MG/KG, QD
     Route: 042
     Dates: start: 20100209, end: 20100508

REACTIONS (8)
  - CARDIO-RESPIRATORY ARREST [None]
  - DRUG INEFFECTIVE [None]
  - EPISTAXIS [None]
  - HAEMORRHAGE INTRACRANIAL [None]
  - HEPATOSPLENOMEGALY [None]
  - LOBAR PNEUMONIA [None]
  - PANCYTOPENIA [None]
  - THROMBOCYTOPENIA [None]
